FAERS Safety Report 9804350 (Version 3)
Quarter: 2014Q3

REPORT INFORMATION
  Report Type: Spontaneous
  Country: US (occurrence: US)
  Receive Date: 20140108
  Receipt Date: 20140904
  Transmission Date: 20150326
  Serious: Yes (Hospitalization, Other)
  Sender: FDA-Public Use
  Company Number: US-009507513-1401USA002633

PATIENT
  Sex: Female

DRUGS (2)
  1. PHENTERMINE [Suspect]
     Active Substance: PHENTERMINE
     Indication: OBESITY
     Dosage: UNK
     Dates: end: 20080811
  2. NUVARING [Suspect]
     Active Substance: ETHINYL ESTRADIOL\ETONOGESTREL
     Indication: AMENORRHOEA
     Dosage: 1 RING FOR 3 WEEKS, REST FOR 1 WEEK
     Route: 067
     Dates: start: 200808, end: 20080822

REACTIONS (2)
  - Pulmonary hypertension [Recovering/Resolving]
  - Pulmonary embolism [Recovering/Resolving]

NARRATIVE: CASE EVENT DATE: 20080818
